FAERS Safety Report 19227423 (Version 2)
Quarter: 2021Q2

REPORT INFORMATION
  Report Type: Spontaneous
  Country: GB (occurrence: GB)
  Receive Date: 20210506
  Receipt Date: 20210528
  Transmission Date: 20210717
  Serious: Yes (Life-Threatening, Other)
  Sender: FDA-Public Use
  Company Number: GB-PFIZER INC-2021485749

PATIENT
  Age: 76 Year
  Sex: Male
  Weight: 73.47 kg

DRUGS (8)
  1. CALCICHEW D3 [Concomitant]
     Active Substance: CALCIUM\CHOLECALCIFEROL
     Indication: ILL-DEFINED DISORDER
  2. LOSARTAN. [Concomitant]
     Active Substance: LOSARTAN
     Indication: ILL-DEFINED DISORDER
  3. NYSTAN [Concomitant]
     Active Substance: NYSTATIN
     Indication: ILL-DEFINED DISORDER
  4. OMEPRAZOL [Concomitant]
     Active Substance: OMEPRAZOLE
  5. DOXYCYCLINE MONOHYDRATE [Suspect]
     Active Substance: DOXYCYCLINE
     Dosage: 200 MG
     Route: 048
     Dates: start: 20201123, end: 20201206
  6. DOXYCYCLINE MONOHYDRATE [Suspect]
     Active Substance: DOXYCYCLINE
     Indication: ILL-DEFINED DISORDER
     Dosage: 100 MG
     Route: 048
  7. AMLODIPIN [AMLODIPINE BESILATE] [Concomitant]
     Active Substance: AMLODIPINE BESYLATE
     Indication: ILL-DEFINED DISORDER
  8. DOXYCYCLINE MONOHYDRATE [Suspect]
     Active Substance: DOXYCYCLINE
     Indication: PEMPHIGOID
     Dosage: 200 MG
     Route: 048
     Dates: start: 20190125

REACTIONS (15)
  - Loss of consciousness [Recovered/Resolved with Sequelae]
  - Brain oedema [Unknown]
  - Fatigue [Recovered/Resolved with Sequelae]
  - Balance disorder [Recovered/Resolved with Sequelae]
  - Feeling abnormal [Recovering/Resolving]
  - Arthralgia [Recovered/Resolved with Sequelae]
  - Visual impairment [Recovered/Resolved with Sequelae]
  - Memory impairment [Recovering/Resolving]
  - Loss of personal independence in daily activities [Unknown]
  - Emotional disorder [Recovering/Resolving]
  - Headache [Recovered/Resolved with Sequelae]
  - Gingival pain [Not Recovered/Not Resolved]
  - Off label use [Unknown]
  - Head discomfort [Recovering/Resolving]
  - Coordination abnormal [Recovered/Resolved]

NARRATIVE: CASE EVENT DATE: 20190125
